FAERS Safety Report 4475545-9 (Version None)
Quarter: 2004Q4

REPORT INFORMATION
  Report Type: 
  Country: None (occurrence: None)
  Receive Date: 20041015
  Receipt Date: 20041004
  Transmission Date: 20050328
  Serious: Yes (Other)
  Sender: FDA-Public Use
  Company Number: NZ-MERCK-0410NZL00006

PATIENT
  Age: 80 Year
  Sex: Female

DRUGS (6)
  1. ACETAMINOPHEN AND CODEINE PHOSPHATE [Concomitant]
     Indication: ANALGESIC EFFECT
     Route: 048
  2. ASPIRIN [Concomitant]
     Route: 048
  3. BENDROFLUMETHIAZIDE [Concomitant]
     Indication: FLUID RETENTION
     Route: 048
  4. DOTHIEPIN HYDROCHLORIDE [Concomitant]
     Indication: SLEEP DISORDER
     Route: 048
  5. VIOXX [Suspect]
     Indication: LIMB INJURY
     Route: 048
     Dates: start: 20030101, end: 20040101
  6. TERAZOSIN HYDROCHLORIDE [Concomitant]
     Indication: BLOOD PRESSURE
     Route: 048

REACTIONS (3)
  - CEREBROVASCULAR ACCIDENT [None]
  - NAUSEA [None]
  - TRANSIENT ISCHAEMIC ATTACK [None]
